FAERS Safety Report 11499398 (Version 4)
Quarter: 2021Q4

REPORT INFORMATION
  Report Type: Spontaneous
  Country: US (occurrence: US)
  Receive Date: 20150914
  Receipt Date: 20211001
  Transmission Date: 20220304
  Serious: Yes (Hospitalization, Other)
  Sender: FDA-Public Use
  Company Number: US-AUROBINDO-AUR-APL-2015-07875

PATIENT
  Age: 21 Year
  Sex: Male

DRUGS (7)
  1. OXYCODONE [Suspect]
     Active Substance: OXYCODONE
     Indication: Product used for unknown indication
     Dosage: 60 MILLIGRAM
     Route: 065
  2. PIPERACILLIN AND TAZOBACTAM [Suspect]
     Active Substance: PIPERACILLIN SODIUM\TAZOBACTAM SODIUM
     Dosage: UNK
     Route: 065
  3. LORAZEPAM [Suspect]
     Active Substance: LORAZEPAM
     Indication: Anxiety
     Dosage: 1 MILLIGRAM
     Route: 065
  4. HALOPERIDOL [Suspect]
     Active Substance: HALOPERIDOL
     Indication: Product used for unknown indication
     Dosage: 5 MILLIGRAM
     Route: 042
  5. HALOPERIDOL [Suspect]
     Active Substance: HALOPERIDOL
     Route: 042
  6. OXYMORPHONE [Suspect]
     Active Substance: OXYMORPHONE
     Indication: Product used for unknown indication
     Dosage: 10 MILLIGRAM
     Route: 065
  7. VANCOMYCIN [Suspect]
     Active Substance: VANCOMYCIN
     Indication: Product used for unknown indication
     Dosage: UNK
     Route: 065

REACTIONS (40)
  - Rhabdomyolysis [Recovered/Resolved]
  - Extrapyramidal disorder [Recovered/Resolved]
  - Withdrawal syndrome [Recovered/Resolved]
  - Delirium [Recovered/Resolved]
  - Anxiety [Recovered/Resolved]
  - Mucosal dryness [Recovered/Resolved]
  - Crepitations [Recovered/Resolved]
  - Pneumomediastinum [Recovered/Resolved]
  - Oesophageal rupture [Recovered/Resolved]
  - Disorientation [Recovered/Resolved]
  - Acute kidney injury [Recovered/Resolved]
  - Oesophageal perforation [Recovered/Resolved]
  - Restlessness [Recovered/Resolved]
  - Confusional state [Recovered/Resolved]
  - Incoherent [Recovered/Resolved]
  - Somnolence [Recovered/Resolved]
  - Agitation [Recovered/Resolved]
  - Dyskinesia [Recovered/Resolved]
  - Blood creatinine decreased [Recovered/Resolved]
  - White blood cell count decreased [Recovered/Resolved]
  - Hallucination, tactile [Recovered/Resolved]
  - Dystonia [Recovered/Resolved]
  - Drug screen positive [Recovered/Resolved]
  - Blood creatine phosphokinase increased [Recovered/Resolved]
  - Akathisia [Recovered/Resolved]
  - Drug dependence [Recovered/Resolved]
  - Chills [Recovered/Resolved]
  - Hyperhidrosis [Recovered/Resolved]
  - Piloerection [Recovered/Resolved]
  - Pharyngeal swelling [Recovered/Resolved]
  - Diarrhoea [Recovered/Resolved]
  - Nausea [Recovered/Resolved]
  - Muscle spasms [Recovered/Resolved]
  - Musculoskeletal stiffness [Recovered/Resolved]
  - Dyspnoea [Recovered/Resolved]
  - Vomiting [Recovered/Resolved]
  - Flushing [Recovered/Resolved]
  - Feeling hot [Recovered/Resolved]
  - Speech disorder [Recovered/Resolved]
  - Hallucinations, mixed [Recovered/Resolved]
